FAERS Safety Report 4286503-1 (Version None)
Quarter: 2004Q1

REPORT INFORMATION
  Report Type: 
  Country: None (occurrence: None)
  Receive Date: 20040204
  Receipt Date: 20040123
  Transmission Date: 20041129
  Serious: Yes (Hospitalization)
  Sender: FDA-Public Use
  Company Number: 2003116977

PATIENT
  Age: 36 Year
  Sex: Male
  Weight: 63.5036 kg

DRUGS (2)
  1. VORICONAZOLE (VORICONAZOLE) [Suspect]
     Dosage: 400 MG (BID), ORAL
     Route: 048
     Dates: start: 20031107, end: 20031108
  2. SIROLIMUS (SIROLIMUS) [Concomitant]

REACTIONS (4)
  - BLOOD URINE [None]
  - COMPUTERISED TOMOGRAM ABNORMAL [None]
  - GRAND MAL CONVULSION [None]
  - HAEMATOMA [None]
